FAERS Safety Report 15700956 (Version 3)
Quarter: 2019Q2

REPORT INFORMATION
  Report Type: Spontaneous
  Country: US (occurrence: US)
  Receive Date: 20181207
  Receipt Date: 20190624
  Transmission Date: 20190711
  Serious: Yes (Other)
  Sender: FDA-Public Use
  Company Number: US-PFIZER INC-2018501632

PATIENT
  Sex: Female
  Weight: 100 kg

DRUGS (2)
  1. TYLENOL [Concomitant]
     Active Substance: ACETAMINOPHEN
     Dosage: 625 MG, UNK
  2. GABAPENTIN. [Suspect]
     Active Substance: GABAPENTIN
     Indication: NEUROPATHY PERIPHERAL
     Dosage: 900 MG, 4X/DAY
     Route: 048
     Dates: end: 2018

REACTIONS (3)
  - Off label use [Unknown]
  - Ankle fracture [Unknown]
  - Drug ineffective for unapproved indication [Unknown]
